FAERS Safety Report 9581184 (Version 2)
Quarter: 2013Q4

REPORT INFORMATION
  Report Type: Spontaneous
  Country: US (occurrence: US)
  Receive Date: 20131002
  Receipt Date: 20131002
  Transmission Date: 20140711
  Serious: Yes (Death, Other)
  Sender: FDA-Public Use
  Company Number: US-CELGENEUS-163-21880-13062584

PATIENT
  Age: 85 Year
  Sex: Female

DRUGS (5)
  1. REVLIMID [Suspect]
     Indication: PLASMA CELL MYELOMA
     Dosage: 25 MILLIGRAM
     Route: 048
     Dates: start: 20130607
  2. REVLIMID [Suspect]
     Dosage: 10 MILLIGRAM
     Route: 048
     Dates: start: 201307, end: 201307
  3. MAGIC MOUTHWASH [Concomitant]
     Indication: STOMATITIS
     Route: 065
     Dates: start: 20130719, end: 201307
  4. NEURONTIN [Concomitant]
     Indication: NEUROPATHY PERIPHERAL
     Dosage: 1200 MILLIGRAM
     Route: 065
     Dates: start: 20101012, end: 201307
  5. DECADRON [Concomitant]
     Indication: PRODUCT USED FOR UNKNOWN INDICATION
     Dosage: 5.7143 MILLIGRAM
     Route: 048
     Dates: start: 20110125, end: 201307

REACTIONS (3)
  - Death [Fatal]
  - Insomnia [Recovered/Resolved]
  - Decreased appetite [Recovered/Resolved]
